FAERS Safety Report 19783931 (Version 1)
Quarter: 2021Q3

REPORT INFORMATION
  Report Type: Spontaneous
  Country: US (occurrence: US)
  Receive Date: 20210903
  Receipt Date: 20210903
  Transmission Date: 20211014
  Serious: No
  Sender: FDA-Public Use
  Company Number: US-BECTON DICKINSON-US-BD-20-005798

PATIENT
  Age: 61 Year
  Sex: Female
  Weight: 49 kg

DRUGS (9)
  1. B COMPLEX (INNATE) [Concomitant]
  2. CLARITIN [Concomitant]
     Active Substance: LORATADINE
     Dosage: UNK, 2X/DAY
     Dates: end: 20201016
  3. ASHWAGANDHA COMPLEX (STANDARD PROCESS) [Concomitant]
  4. UNSPECIFIED PRODUCTS [Concomitant]
     Active Substance: UNSPECIFIED INGREDIENT
  5. ST. JOHN^S WORT (STANDARD PROCESS) [Concomitant]
  6. UNSPECIFIED ANTIBIOTIC [Suspect]
     Active Substance: UNSPECIFIED INGREDIENT
     Dosage: UNK
     Dates: start: 202010, end: 202010
  7. ARMOUR THYROID [Concomitant]
     Active Substance: THYROID, PORCINE
  8. ASHWAGANDHA COMPLEX (MEDIHERB) [Concomitant]
  9. CHLORAPREP WITH TINT [Suspect]
     Active Substance: CHLORHEXIDINE GLUCONATE\ISOPROPYL ALCOHOL
     Dosage: UNK
     Route: 061
     Dates: start: 20201009, end: 20201009

REACTIONS (3)
  - Application site rash [Recovered/Resolved]
  - Dermatitis contact [Recovered/Resolved]
  - Application site discolouration [Unknown]

NARRATIVE: CASE EVENT DATE: 202010
